FAERS Safety Report 9523686 (Version 1)
Quarter: 2013Q3

REPORT INFORMATION
  Report Type: Report from Study
  Country: DE (occurrence: DE)
  Receive Date: 20130913
  Receipt Date: 20130913
  Transmission Date: 20140515
  Serious: Yes (Other)
  Sender: FDA-Public Use
  Company Number: DE-ROCHE-1274001

PATIENT
  Age: 44 Year
  Sex: Female
  Weight: 73 kg

DRUGS (8)
  1. TRASTUZUMAB [Suspect]
     Indication: BREAST CANCER
     Route: 042
     Dates: start: 20121130
  2. CYCLOPHOSPHAMID [Suspect]
     Indication: BREAST CANCER
     Dosage: LAST DOSE PRIOR TO SAE ON 25/JAN/2013.
     Route: 042
     Dates: start: 20130111
  3. EPIRUBICIN [Suspect]
     Indication: BREAST CANCER
     Route: 042
     Dates: start: 20121018, end: 20121116
  4. NAB-PACLITAXEL [Suspect]
     Indication: BREAST CANCER
     Route: 042
     Dates: start: 20121130, end: 20121228
  5. CIPROFLOXACIN [Concomitant]
     Route: 065
     Dates: start: 20130130, end: 20130206
  6. PEGFILGRASTIM [Concomitant]
     Route: 065
     Dates: start: 20130126, end: 20130126
  7. DARBEPOETIN ALFA [Concomitant]
     Route: 065
     Dates: start: 20130201
  8. FERRO SANOL [Concomitant]
     Route: 065
     Dates: start: 20130201

REACTIONS (1)
  - Pancytopenia [Recovered/Resolved]
